FAERS Safety Report 14828714 (Version 2)
Quarter: 2018Q2

REPORT INFORMATION
  Report Type: Spontaneous
  Country: DE (occurrence: DE)
  Receive Date: 20180430
  Receipt Date: 20180515
  Transmission Date: 20180711
  Serious: Yes (Disabling)
  Sender: FDA-Public Use
  Company Number: DE-SA-2018SA120660

PATIENT
  Age: 59 Year
  Sex: Female

DRUGS (1)
  1. AUBAGIO [Suspect]
     Active Substance: TERIFLUNOMIDE
     Indication: MULTIPLE SCLEROSIS
     Route: 048
     Dates: start: 20180411, end: 20180420

REACTIONS (10)
  - Headache [Recovered/Resolved]
  - Sleep disorder [Recovered/Resolved]
  - Cystitis [Recovering/Resolving]
  - Arthralgia [Recovering/Resolving]
  - Immobile [Recovering/Resolving]
  - Pain in extremity [Recovered/Resolved]
  - Cystitis [Recovered/Resolved]
  - Vomiting [Recovered/Resolved]
  - Diarrhoea [Recovering/Resolving]
  - Mood swings [Recovering/Resolving]
